FAERS Safety Report 23660444 (Version 1)
Quarter: 2024Q1

REPORT INFORMATION
  Report Type: Report from Study
  Country: CH (occurrence: CH)
  Receive Date: 20240321
  Receipt Date: 20240321
  Transmission Date: 20240409
  Serious: Yes (Death, Other)
  Sender: FDA-Public Use
  Company Number: CH-ABBVIE-5686553

PATIENT
  Sex: Female

DRUGS (3)
  1. CARBIDOPA\LEVODOPA [Suspect]
     Active Substance: CARBIDOPA\LEVODOPA
     Indication: Parkinson^s disease
     Route: 050
     Dates: start: 20220711
  2. CARBIDOPA\LEVODOPA [Suspect]
     Active Substance: CARBIDOPA\LEVODOPA
     Dosage: MD: 10.0 ML, CRD: 3.4 ML/H, CRN: 2.0 ML/H, ED: 1.0 ML?FREQUENCY TEXT: 24H THERAPY
     Route: 050
     Dates: start: 20231030, end: 20240228
  3. CARBIDOPA\LEVODOPA [Suspect]
     Active Substance: CARBIDOPA\LEVODOPA
     Dosage: MD: 11.0 ML, CRD: 3.4 ML/H, CRN: 2.0 ML/H, ED: 2.0 ML?FREQUENCY TEXT: 24H THERAPY
     Route: 050
     Dates: start: 20240229, end: 20240319

REACTIONS (3)
  - Death [Fatal]
  - General physical health deterioration [Not Recovered/Not Resolved]
  - Epilepsy [Not Recovered/Not Resolved]
